FAERS Safety Report 6685091-X (Version None)
Quarter: 2010Q2

REPORT INFORMATION
  Report Type: 
  Country: None (occurrence: None)
  Receive Date: 20100416
  Receipt Date: 20100409
  Transmission Date: 20101027
  Serious: Yes (Other)
  Sender: FDA-Public Use
  Company Number: B0646799A

PATIENT
  Age: 53 Year
  Sex: Male

DRUGS (7)
  1. KIVEXA [Suspect]
     Indication: ANTIRETROVIRAL THERAPY
  2. ABACAVIR [Suspect]
     Indication: ANTIRETROVIRAL THERAPY
  3. KALETRA [Suspect]
     Indication: ANTIRETROVIRAL THERAPY
  4. NORVIR [Suspect]
     Indication: ANTIRETROVIRAL THERAPY
  5. SUSTIVA [Suspect]
     Indication: ANTIRETROVIRAL THERAPY
  6. REYATAZ [Suspect]
     Indication: ANTIRETROVIRAL THERAPY
  7. ATRIPLA [Suspect]
     Indication: ANTIRETROVIRAL THERAPY

REACTIONS (3)
  - ABNORMAL DREAMS [None]
  - DIARRHOEA [None]
  - MYOCARDIAL INFARCTION [None]
